FAERS Safety Report 13303914 (Version 1)
Quarter: 2017Q1

REPORT INFORMATION
  Report Type: Not Available
  Country: IN (occurrence: IN)
  Receive Date: 20170307
  Receipt Date: 20170307
  Transmission Date: 20170428
  Serious: Yes (Life-Threatening)
  Sender: FDA-Public Use
  Company Number: IN--2017-IN-000029

PATIENT
  Age: 69 Year
  Sex: Male

DRUGS (2)
  1. AMLODIPINE BESYLATE BRAND UNSPECIFIED (VIVIMED) [Suspect]
     Active Substance: AMLODIPINE BESYLATE
     Indication: PRODUCT USED FOR UNKNOWN INDICATION
     Dosage: 10 TABLETS (5 MG EACH, TOTAL DOSE 50 MG)
  2. LERCANIDIPINE [Suspect]
     Active Substance: LERCANIDIPINE
     Indication: HYPERTENSION
     Dosage: 30 TABLETS (10 MG EACH, TOTAL DOSE 300 MG)

REACTIONS (3)
  - Shock [Recovered/Resolved]
  - Multiple organ dysfunction syndrome [Recovered/Resolved]
  - Overdose [Recovered/Resolved]
